FAERS Safety Report 9747050 (Version 2)
Quarter: 2014Q1

REPORT INFORMATION
  Report Type: Spontaneous
  Country: US (occurrence: US)
  Receive Date: 20131211
  Receipt Date: 20140124
  Transmission Date: 20141002
  Serious: Yes (Other)
  Sender: FDA-Public Use
  Company Number: US-GILEAD-2013-0089503

PATIENT
  Sex: Male

DRUGS (1)
  1. LETAIRIS [Suspect]
     Indication: PULMONARY ARTERIAL HYPERTENSION
     Dosage: 10 MG, UNK
     Route: 048
     Dates: start: 20110429

REACTIONS (6)
  - Femur fracture [Unknown]
  - Shock [Unknown]
  - Pulmonary thrombosis [Unknown]
  - Nerve injury [Unknown]
  - Neuropathy peripheral [Unknown]
  - Knee operation [Unknown]
